FAERS Safety Report 9300717 (Version 1)
Quarter: 2013Q2

REPORT INFORMATION
  Report Type: Spontaneous
  Country: US (occurrence: None)
  Receive Date: 20130520
  Receipt Date: 20130520
  Transmission Date: 20140414
  Serious: Yes (Hospitalization)
  Sender: FDA-Public Use
  Company Number: None

PATIENT
  Age: 17 Year
  Sex: Male
  Weight: 97.52 kg

DRUGS (1)
  1. DAPSONE [Suspect]
     Dosage: 100 MG BID PO
     Route: 048
     Dates: start: 20130513, end: 20130516

REACTIONS (2)
  - Haemolysis [None]
  - Blood pressure decreased [None]
